FAERS Safety Report 12647363 (Version 1)
Quarter: 2016Q3

REPORT INFORMATION
  Report Type: Spontaneous
  Country: US (occurrence: None)
  Receive Date: 20160811
  Receipt Date: 20160811
  Transmission Date: 20161109
  Serious: No
  Sender: FDA-Public Use
  Company Number: None

PATIENT
  Age: 68 Year
  Sex: Female
  Weight: 55.34 kg

DRUGS (5)
  1. CITRUCEL [Concomitant]
     Active Substance: METHYLCELLULOSE (4000 MPA.S)
  2. VITAMIN D [Concomitant]
     Active Substance: CHOLECALCIFEROL
  3. IMIQUIMOD CREAM 5% GLENMARK [Suspect]
     Active Substance: IMIQUIMOD
     Indication: BASAL CELL CARCINOMA
     Dosage: APPLY TO SKIN DAILY, ONCE DAILY
     Route: 061
     Dates: end: 20160406
  4. ESTRADIOL. [Concomitant]
     Active Substance: ESTRADIOL
  5. NIACINAMIDE [Concomitant]
     Active Substance: NIACINAMIDE

REACTIONS (2)
  - Dysplasia [None]
  - Melanocytic naevus [None]

NARRATIVE: CASE EVENT DATE: 20160712
